FAERS Safety Report 5088353-5 (Version None)
Quarter: 2006Q3

REPORT INFORMATION
  Report Type: 
  Country: None (occurrence: None)
  Receive Date: 20060822
  Receipt Date: 20060811
  Transmission Date: 20061208
  Serious: Yes (Hospitalization)
  Sender: FDA-Public Use
  Company Number: 2006US001788

PATIENT
  Age: 45 Year
  Sex: Female

DRUGS (7)
  1. AMBISOME [Suspect]
     Indication: CRYPTOCOCCOSIS
     Dosage: SEE IMAGE
     Route: 042
     Dates: start: 20060514, end: 20060522
  2. AMBISOME [Suspect]
     Indication: CRYPTOCOCCOSIS
     Dosage: SEE IMAGE
     Route: 042
     Dates: start: 20060708, end: 20060713
  3. AMBISOME [Suspect]
     Indication: CRYPTOCOCCOSIS
     Dosage: SEE IMAGE
     Route: 042
     Dates: start: 20060725, end: 20060727
  4. VFEND [Concomitant]
  5. COMBIVIR [Concomitant]
  6. SUSTIVA [Concomitant]
  7. TRAMADOL HCL [Concomitant]

REACTIONS (2)
  - HYPOKALAEMIA [None]
  - RENAL TUBULAR DISORDER [None]
